FAERS Safety Report 9707217 (Version 1)
Quarter: 2013Q4

REPORT INFORMATION
  Report Type: Spontaneous
  Country: US (occurrence: US)
  Receive Date: 20131125
  Receipt Date: 20131125
  Transmission Date: 20140711
  Serious: No
  Sender: FDA-Public Use
  Company Number: US-MALLINCKRODT-T201204360

PATIENT
  Age: 60 Year
  Sex: Female
  Weight: 79.82 kg

DRUGS (4)
  1. KIT FOR THE PREPARATION OF TECHNETIUM (TC-99M) SESTAMIBI INJECTION [Suspect]
     Indication: SCAN MYOCARDIAL PERFUSION
     Dosage: UNK
     Dates: start: 20121213, end: 20121213
  2. ULTRA-TECHNEKOW DTE GENERATOR [Suspect]
     Indication: SCAN MYOCARDIAL PERFUSION
     Dosage: UNK UNK, SINGLE
     Dates: start: 20121213, end: 20121213
  3. NORMAL SALINE [Suspect]
     Indication: SCAN MYOCARDIAL PERFUSION
     Dosage: UNK, SINGLE
     Dates: start: 20121213, end: 20121213
  4. AMBIEN [Concomitant]
     Dosage: UNK

REACTIONS (2)
  - Rash generalised [Recovered/Resolved]
  - Urticaria [Recovered/Resolved]
